FAERS Safety Report 7402419-3 (Version None)
Quarter: 2011Q2

REPORT INFORMATION
  Report Type: 
  Country: None (occurrence: None)
  Receive Date: 20110408
  Receipt Date: 20110405
  Transmission Date: 20111010
  Serious: Yes (Hospitalization)
  Sender: FDA-Public Use
  Company Number: US-BRISTOL-MYERS SQUIBB COMPANY-15380371

PATIENT
  Age: 60 Year
  Sex: Female

DRUGS (6)
  1. LISINOPRIL [Concomitant]
  2. PROTONIX [Concomitant]
  3. METFORMIN HCL [Concomitant]
     Dosage: METFORMIN HCL ER
  4. TOPROL-XL [Concomitant]
  5. ONGLYZA [Suspect]
     Indication: DIABETES MELLITUS
     Dates: start: 20100701
  6. EFFEXOR XR [Concomitant]

REACTIONS (1)
  - PANCREATITIS [None]
